FAERS Safety Report 7200285-2 (Version None)
Quarter: 2010Q4

REPORT INFORMATION
  Report Type: 
  Country: None (occurrence: None)
  Receive Date: 20101228
  Receipt Date: 20101217
  Transmission Date: 20110411
  Serious: Yes (Hospitalization)
  Sender: FDA-Public Use
  Company Number: B0688090A

PATIENT
  Sex: Female

DRUGS (13)
  1. ZIAGEN [Suspect]
     Indication: HIV INFECTION
     Route: 048
     Dates: start: 20070901, end: 20080501
  2. ZIAGEN [Suspect]
     Indication: PRODUCT USED FOR UNKNOWN INDICATION
     Dates: end: 20081101
  3. EPIVIR [Suspect]
     Indication: HIV INFECTION
     Route: 048
     Dates: start: 20070601, end: 20080501
  4. EPIVIR [Suspect]
     Route: 048
     Dates: end: 20081101
  5. ZERIT [Suspect]
     Indication: HIV INFECTION
     Route: 048
     Dates: start: 20070601, end: 20070901
  6. KALETRA [Suspect]
     Indication: HIV INFECTION
     Route: 048
     Dates: start: 20070601, end: 20080501
  7. DARUNAVIR ETHANOLATE [Suspect]
     Indication: HIV INFECTION
     Route: 048
  8. NORVIR [Suspect]
     Indication: HIV INFECTION
     Route: 048
  9. VIREAD [Suspect]
     Indication: HIV INFECTION
     Route: 048
     Dates: start: 20081101, end: 20100701
  10. EMTRIVA [Suspect]
     Indication: HIV INFECTION
     Route: 048
     Dates: start: 20081101, end: 20100701
  11. ISENTRESS [Concomitant]
     Indication: HIV INFECTION
     Route: 048
     Dates: start: 20100701
  12. CALCIUM ANTAGONIST [Concomitant]
     Dates: start: 20071001
  13. STATINS [Concomitant]
     Dates: start: 20071001

REACTIONS (13)
  - BLOOD CHOLESTEROL INCREASED [None]
  - BLOOD TRIGLYCERIDES INCREASED [None]
  - COMPRESSION FRACTURE [None]
  - DUODENAL ULCER [None]
  - DYSPHAGIA [None]
  - ESSENTIAL HYPERTENSION [None]
  - GASTRIC ULCER [None]
  - HYPERLIPIDAEMIA [None]
  - HYPERTENSION [None]
  - HYPOAESTHESIA [None]
  - OSTEOPOROSIS [None]
  - RENAL IMPAIRMENT [None]
  - VOMITING [None]
